FAERS Safety Report 13877359 (Version 2)
Quarter: 2017Q3

REPORT INFORMATION
  Report Type: Spontaneous
  Country: US (occurrence: US)
  Receive Date: 20170817
  Receipt Date: 20170830
  Transmission Date: 20171127
  Serious: No
  Sender: FDA-Public Use
  Company Number: US-FRESENIUS KABI-FK201706943

PATIENT
  Age: 55 Year
  Sex: Female

DRUGS (5)
  1. PROPOFOL (MANUFACTURER UNKNOWN) [Suspect]
     Active Substance: PROPOFOL
     Indication: SEDATIVE THERAPY
     Route: 065
     Dates: start: 20170717, end: 20170717
  2. FENTANYL. [Concomitant]
     Active Substance: FENTANYL
     Indication: SEDATIVE THERAPY
     Route: 065
     Dates: start: 20170717, end: 20170717
  3. PROPOFOL (MANUFACTURER UNKNOWN) [Suspect]
     Active Substance: PROPOFOL
     Indication: SEDATIVE THERAPY
  4. LIDOCAINE. [Concomitant]
     Active Substance: LIDOCAINE
     Indication: SEDATIVE THERAPY
     Route: 065
     Dates: start: 20170717, end: 20170717
  5. PROPOFOL (MANUFACTURER UNKNOWN) [Suspect]
     Active Substance: PROPOFOL
     Indication: SEDATIVE THERAPY

REACTIONS (1)
  - Amnesia [Unknown]
